FAERS Safety Report 8470343 (Version 4)
Quarter: 2012Q4

REPORT INFORMATION
  Report Type: Report from Study
  Country: DE (occurrence: DE)
  Receive Date: 20120321
  Receipt Date: 20120910
  Transmission Date: 20130627
  Serious: Yes (Hospitalization, Other)
  Sender: FDA-Public Use
  Company Number: DE-ABBOTT-12P-062-0916540-00

PATIENT
  Age: 56 Year
  Sex: Male

DRUGS (4)
  1. HUMIRA 40 MG/0.8 ML PEN [Suspect]
     Indication: ANKYLOSING SPONDYLITIS
     Route: 058
     Dates: start: 20101107, end: 20120101
  2. CARVEDILOL 25 [Concomitant]
     Indication: PRODUCT USED FOR UNKNOWN INDICATION
  3. EPROSARTAN CT 500 [Concomitant]
     Indication: PRODUCT USED FOR UNKNOWN INDICATION
  4. PANTOZOL [Concomitant]
     Indication: PRODUCT USED FOR UNKNOWN INDICATION

REACTIONS (7)
  - Meningioma [Unknown]
  - Headache [Unknown]
  - Movement disorder [Unknown]
  - Sensory disturbance [Unknown]
  - Hearing impaired [Unknown]
  - Nausea [Unknown]
  - Unevaluable event [Unknown]
